FAERS Safety Report 10613494 (Version 1)
Quarter: 2014Q4

REPORT INFORMATION
  Report Type: Spontaneous
  Country: IN (occurrence: IN)
  Receive Date: 20141128
  Receipt Date: 20141128
  Transmission Date: 20150529
  Serious: Yes (Hospitalization)
  Sender: FDA-Public Use
  Company Number: IN-ROCHE-1491915

PATIENT
  Age: 51 Year
  Sex: Female

DRUGS (8)
  1. COTRIMOXAZOLE [Concomitant]
     Active Substance: SULFAMETHOXAZOLE\TRIMETHOPRIM
     Indication: INFECTION
     Dosage: 160 MG/800 MG ONE TABLET, ONCE DAILY
     Route: 065
  2. FLUCONAZOLE. [Concomitant]
     Active Substance: FLUCONAZOLE
     Indication: DYSPHAGIA
  3. GANCICLOVIR. [Suspect]
     Active Substance: GANCICLOVIR
     Indication: DECREASED APPETITE
     Route: 048
  4. FLUCONAZOLE. [Concomitant]
     Active Substance: FLUCONAZOLE
     Indication: DECREASED APPETITE
     Route: 048
  5. EFAVIRENZ [Concomitant]
     Active Substance: EFAVIRENZ
     Indication: HIV INFECTION
     Route: 065
  6. TENOFOVIR [Interacting]
     Active Substance: TENOFOVIR
     Indication: HIV INFECTION
     Route: 065
  7. EMTRICITABINE [Concomitant]
     Active Substance: EMTRICITABINE
     Indication: HIV INFECTION
     Route: 065
  8. GANCICLOVIR. [Interacting]
     Active Substance: GANCICLOVIR
     Indication: DYSPHAGIA

REACTIONS (2)
  - Drug interaction [Unknown]
  - Nephropathy toxic [Recovering/Resolving]
